FAERS Safety Report 5038161-6 (Version None)
Quarter: 2006Q2

REPORT INFORMATION
  Report Type: 
  Country: None (occurrence: None)
  Receive Date: 20060622
  Receipt Date: 20060609
  Transmission Date: 20061013
  Serious: Yes (Other)
  Sender: FDA-Public Use
  Company Number: 2006073575

PATIENT
  Age: 56 Year
  Sex: Male
  Weight: 124.7392 kg

DRUGS (2)
  1. VIAGRA [Suspect]
     Indication: ERECTILE DYSFUNCTION
     Dosage: 50 MG (50 MG)
  2. ALEVE [Concomitant]

REACTIONS (6)
  - DRUG INEFFECTIVE [None]
  - FLUSHING [None]
  - HYDROCEPHALUS [None]
  - MEDICAL DEVICE CHANGE [None]
  - POOR QUALITY DRUG ADMINISTERED [None]
  - SHUNT MALFUNCTION [None]
